FAERS Safety Report 7481486-5 (Version None)
Quarter: 2011Q2

REPORT INFORMATION
  Report Type: 
  Country: None (occurrence: None)
  Receive Date: 20110516
  Receipt Date: 20110324
  Transmission Date: 20111010
  Serious: Yes (Other)
  Sender: FDA-Public Use
  Company Number: BE-ASTRAZENECA-2011SE16801

PATIENT
  Age: 79 Year
  Sex: Female
  Weight: 73 kg

DRUGS (8)
  1. CRESTOR [Suspect]
     Indication: DYSLIPIDAEMIA
     Route: 048
     Dates: start: 20060101, end: 20101220
  2. BISOPROLOL FUMARATE [Concomitant]
     Indication: HYPERTENSION
     Route: 048
     Dates: start: 20020101
  3. PRETERAX [Concomitant]
     Indication: HYPERTENSION
     Route: 048
     Dates: start: 20060101
  4. METFORMAX [Concomitant]
     Dosage: 2X 1/2 TABLET/DAY BID
     Dates: start: 20080101
  5. EUTHYROX [Concomitant]
     Dosage: 125 PLUSE MINUS
     Dates: start: 20000101
  6. PROPAFENONE HCL [Concomitant]
     Indication: ARRHYTHMIA
     Dosage: BID
     Route: 048
     Dates: start: 20090101
  7. FOSAVANCE [Concomitant]
     Dosage: 5600
  8. FOSAVANCE [Concomitant]
     Dosage: 5600

REACTIONS (6)
  - ABDOMINAL DISCOMFORT [None]
  - HEPATIC STEATOSIS [None]
  - HEPATITIS TOXIC [None]
  - CHOLESTASIS [None]
  - HIATUS HERNIA [None]
  - ASTHENIA [None]
